FAERS Safety Report 6563635-6 (Version None)
Quarter: 2010Q1

REPORT INFORMATION
  Report Type: 
  Country: None (occurrence: None)
  Receive Date: 20100130
  Receipt Date: 20091222
  Transmission Date: 20100710
  Serious: Yes (Hospitalization)
  Sender: FDA-Public Use
  Company Number: US-ABBOTT-09P-163-0616105-00

PATIENT
  Sex: Female
  Weight: 64.014 kg

DRUGS (4)
  1. HUMIRA [Suspect]
     Indication: RHEUMATOID ARTHRITIS
     Route: 058
     Dates: start: 20070101
  2. DARVOCET-N 100 [Concomitant]
     Indication: ARTHRALGIA
     Route: 048
  3. DARVOCET-N 100 [Concomitant]
  4. ULTRAM [Concomitant]
     Indication: RHEUMATOID ARTHRITIS
     Route: 048

REACTIONS (4)
  - CERVICAL VERTEBRAL FRACTURE [None]
  - FALL [None]
  - MUSCULOSKELETAL PAIN [None]
  - NECK PAIN [None]
